FAERS Safety Report 8340407-3 (Version None)
Quarter: 2012Q2

REPORT INFORMATION
  Report Type: 
  Country: None (occurrence: None)
  Receive Date: 20120507
  Receipt Date: 20120507
  Transmission Date: 20120825
  Serious: Yes (Life-Threatening)
  Sender: FDA-Public Use
  Company Number: None

PATIENT
  Age: 50 Year
  Sex: Male
  Weight: 104.32 kg

DRUGS (2)
  1. HUMIRA [Suspect]
     Indication: PSORIASIS
     Dosage: |DOSAGETEXT: 1 INJECTION||STRENGTH: 40 MG||FREQ: 1/WEEK|
     Dates: start: 20040101, end: 20120101
  2. HUMIRA [Suspect]
     Indication: PSORIATIC ARTHROPATHY
     Dosage: |DOSAGETEXT: 1 INJECTION||STRENGTH: 40 MG||FREQ: 1/WEEK|
     Dates: start: 20040101, end: 20120101

REACTIONS (2)
  - DIFFUSE LARGE B-CELL LYMPHOMA [None]
  - PUSTULAR PSORIASIS [None]
